FAERS Safety Report 14691461 (Version 1)
Quarter: 2018Q1

REPORT INFORMATION
  Report Type: Report from Study
  Country: None (occurrence: CO)
  Receive Date: 20180328
  Receipt Date: 20180328
  Transmission Date: 20180509
  Serious: Yes (Other)
  Sender: FDA-Public Use
  Company Number: CO-ABBVIE-18K-036-2303797-00

PATIENT
  Age: 43 Year
  Sex: Female

DRUGS (1)
  1. HUMIRA [Suspect]
     Active Substance: ADALIMUMAB
     Indication: CROHN^S DISEASE
     Route: 058
     Dates: start: 20170805, end: 20180117

REACTIONS (3)
  - Intestinal obstruction [Unknown]
  - Pelvic adhesions [Unknown]
  - Endometriosis [Unknown]

NARRATIVE: CASE EVENT DATE: 201803
